FAERS Safety Report 24137489 (Version 1)
Quarter: 2024Q3

REPORT INFORMATION
  Report Type: Spontaneous
  Country: US (occurrence: US)
  Receive Date: 20240725
  Receipt Date: 20240725
  Transmission Date: 20241017
  Serious: No
  Sender: SANDOZ
  Company Number: US-SANDOZ-SDZ2024US067862

PATIENT
  Sex: Female

DRUGS (1)
  1. ESTRADIOL [Suspect]
     Active Substance: ESTRADIOL
     Indication: Product used for unknown indication
     Dosage: 0.05 MG, QW
     Route: 062

REACTIONS (4)
  - Application site erythema [Unknown]
  - Hot flush [Unknown]
  - Product adhesion issue [Unknown]
  - Incorrect dose administered [Unknown]
